FAERS Safety Report 5110265-9 (Version None)
Quarter: 2006Q3

REPORT INFORMATION
  Report Type: 
  Country: None (occurrence: None)
  Receive Date: 20060921
  Receipt Date: 20060829
  Transmission Date: 20061208
  Serious: Yes (Life-Threatening, Hospitalization)
  Sender: FDA-Public Use
  Company Number: JP-JPN-A200603411

PATIENT
  Age: 64 Year
  Sex: Male
  Weight: 63 kg

DRUGS (31)
  1. FLOLAN [Suspect]
     Indication: PULMONARY HYPERTENSION
     Route: 042
     Dates: start: 20060728, end: 20060828
  2. PROPOFOL [Suspect]
     Dates: start: 20060728, end: 20060825
  3. HEPARIN [Suspect]
     Route: 042
  4. BIOFERMIN [Suspect]
     Route: 048
  5. DAI-KENCHU-TO [Suspect]
     Route: 048
  6. HALOPERIDOL [Suspect]
     Dates: end: 20060827
  7. INTRALIPID 10% [Suspect]
     Dates: start: 20060813, end: 20060903
  8. MINOCYCLINE HCL [Concomitant]
     Route: 065
  9. MARZULENE S [Concomitant]
     Route: 048
  10. DORMICUM [Concomitant]
     Route: 042
     Dates: start: 20060813, end: 20060818
  11. UNKNOWN NAME [Concomitant]
  12. CEFAMEZIN [Concomitant]
     Route: 042
     Dates: start: 20060728, end: 20060802
  13. P N TWIN [Concomitant]
     Dates: start: 20060729, end: 20060831
  14. NEOLAMIN [Concomitant]
     Route: 042
     Dates: start: 20060729, end: 20060903
  15. TIENAM [Concomitant]
     Route: 042
     Dates: start: 20060802, end: 20060806
  16. MEDLENIK [Concomitant]
     Route: 042
     Dates: start: 20060729, end: 20060903
  17. GASTER [Concomitant]
     Route: 042
     Dates: start: 20060729, end: 20060813
  18. LASIX [Concomitant]
     Route: 042
     Dates: start: 20060728
  19. VANCOMYCIN [Concomitant]
     Route: 042
     Dates: start: 20060806, end: 20060813
  20. HANP [Concomitant]
     Route: 042
     Dates: start: 20060729, end: 20060810
  21. DIAMOX [Concomitant]
     Route: 042
     Dates: start: 20060731, end: 20060811
  22. SOLDACTONE [Concomitant]
     Dosage: 20MG PER DAY
     Route: 042
  23. PANTOL [Concomitant]
     Route: 042
     Dates: start: 20060801, end: 20060802
  24. ENALAPRIL MALEATE [Concomitant]
     Dates: end: 20060813
  25. METOCLOPRAMIDE [Concomitant]
     Dates: start: 20060822
  26. SOYBEAN OIL [Concomitant]
  27. AMINO ACID + TOTAL PARENTERAL NUTRITION [Concomitant]
  28. ANTIBIOTIC-RESISTANT LACTIC ACID BACTERIA [Concomitant]
  29. METHYLPREDNISOLONE [Concomitant]
     Dosage: 1G THREE TIMES PER DAY
     Dates: start: 20060825, end: 20060830
  30. IMMUNE GLOBULIN INTRAVENOUS (HUMAN) [Concomitant]
     Dosage: 20G PER DAY
     Dates: start: 20060831, end: 20060902
  31. BETAMETHASONE [Concomitant]
     Dosage: 8MG PER DAY
     Dates: start: 20060831

REACTIONS (5)
  - BLISTER [None]
  - EPIDERMOLYSIS [None]
  - ERYTHEMA MULTIFORME [None]
  - STEVENS-JOHNSON SYNDROME [None]
  - TOXIC EPIDERMAL NECROLYSIS [None]
